FAERS Safety Report 18372196 (Version 2)
Quarter: 2020Q4

REPORT INFORMATION
  Report Type: Spontaneous
  Country: FR (occurrence: FR)
  Receive Date: 20201012
  Receipt Date: 20201022
  Transmission Date: 20210114
  Serious: Yes (Hospitalization)
  Sender: FDA-Public Use
  Company Number: NVSC2020FR269310

PATIENT
  Age: 64 Year
  Sex: Male

DRUGS (10)
  1. PARACETAMOL [Suspect]
     Active Substance: ACETAMINOPHEN
     Indication: PRODUCT USED FOR UNKNOWN INDICATION
     Dosage: 3 G (MAXIMUM IF NECESSARY)
     Route: 065
     Dates: start: 20200720
  2. LOVENOX [Suspect]
     Active Substance: ENOXAPARIN SODIUM
     Indication: THROMBOSIS PROPHYLAXIS
     Dosage: 0.2 ML, QD (MORNING AND EVENING)
     Route: 042
     Dates: start: 20200720
  3. PANTOPRAZOLE [Suspect]
     Active Substance: PANTOPRAZOLE
     Indication: ULCER
     Dosage: 20 MG, QD (IN THE EVENING)
     Route: 048
     Dates: start: 20200720
  4. CEFTRIAXONE. [Suspect]
     Active Substance: CEFTRIAXONE
     Indication: PRODUCT USED FOR UNKNOWN INDICATION
     Dosage: 1 G, QD
     Route: 042
     Dates: start: 20200506, end: 20200720
  5. DEXAMETHASONE. [Suspect]
     Active Substance: DEXAMETHASONE
     Indication: COVID-19 PNEUMONIA
     Dosage: 4 MG, QD
     Route: 042
     Dates: start: 20200721
  6. XATRAL [Suspect]
     Active Substance: ALFUZOSIN
     Indication: ANXIETY
     Dosage: 2.5 MG, QD (IN THE MORNING)
     Route: 048
     Dates: start: 20200720
  7. LEDERFOLINE [Suspect]
     Active Substance: LEUCOVORIN CALCIUM
     Indication: PRODUCT USED FOR UNKNOWN INDICATION
     Dosage: 25 MG ( ON TUESDAY)
     Route: 065
     Dates: start: 202007
  8. LACTULOSE. [Suspect]
     Active Substance: LACTULOSE
     Indication: GASTROINTESTINAL MOTILITY DISORDER
     Dosage: 2 DF, QD (2 SACHETS IN THE MORNING)
     Route: 065
     Dates: start: 20200720
  9. CYMEVAN [Suspect]
     Active Substance: GANCICLOVIR
     Indication: CYTOMEGALOVIRUS INFECTION
     Dosage: 250 MG (MORNING AND EVENING) (INFUSION, POWDER)
     Route: 042
     Dates: start: 20200711, end: 20200723
  10. BACTRIM [Suspect]
     Active Substance: SULFAMETHOXAZOLE\TRIMETHOPRIM
     Indication: NEUTROPENIA
     Dosage: 1 DF (800/160 MG, 1 TABLET ON MONDAYS, WEDNESDAYS AND FRIDAYS)
     Route: 048
     Dates: start: 20200708, end: 20200722

REACTIONS (4)
  - Lymphopenia [Not Recovered/Not Resolved]
  - Leukopenia [Not Recovered/Not Resolved]
  - Neutropenia [Not Recovered/Not Resolved]
  - Thrombocytopenia [Not Recovered/Not Resolved]

NARRATIVE: CASE EVENT DATE: 20200716
